FAERS Safety Report 6818218-7 (Version None)
Quarter: 2010Q3

REPORT INFORMATION
  Report Type: 
  Country: None (occurrence: None)
  Receive Date: 20100706
  Receipt Date: 20070329
  Transmission Date: 20110219
  Serious: No
  Sender: FDA-Public Use
  Company Number: US-PFIZER INC-2007025817

PATIENT
  Sex: Female
  Weight: 15.2 kg

DRUGS (5)
  1. ZITHROMAX [Suspect]
     Indication: UPPER RESPIRATORY TRACT INFECTION
     Dates: start: 20070327
  2. ZITHROMAX [Suspect]
     Indication: PNEUMONIA
  3. MONTELUKAST SODIUM [Concomitant]
  4. ALBUTEROL [Concomitant]
  5. ALBUTEROL [Concomitant]

REACTIONS (1)
  - FAECES DISCOLOURED [None]
